FAERS Safety Report 25724029 (Version 1)
Quarter: 2025Q3

REPORT INFORMATION
  Report Type: Spontaneous
  Country: US (occurrence: US)
  Receive Date: 20250826
  Receipt Date: 20250826
  Transmission Date: 20251020
  Serious: No
  Sender: ELI LILLY AND COMPANY
  Company Number: US-ELI_LILLY_AND_COMPANY-US202508019924

PATIENT
  Age: 43 Year
  Sex: Female

DRUGS (1)
  1. ZEPBOUND [Suspect]
     Active Substance: TIRZEPATIDE
     Indication: Weight control
     Route: 065
     Dates: start: 20250816

REACTIONS (5)
  - Throat irritation [Recovered/Resolved]
  - Nausea [Unknown]
  - Dizziness [Recovered/Resolved]
  - Injection site rash [Unknown]
  - Asthenia [Unknown]

NARRATIVE: CASE EVENT DATE: 20250816
